FAERS Safety Report 14901146 (Version 2)
Quarter: 2018Q3

REPORT INFORMATION
  Report Type: Spontaneous
  Country: US (occurrence: US)
  Receive Date: 20180516
  Receipt Date: 20180706
  Transmission Date: 20181010
  Serious: No
  Sender: FDA-Public Use
  Company Number: US-ASTRAZENECA-2018SE58291

PATIENT
  Sex: Male

DRUGS (1)
  1. BYDUREON [Suspect]
     Active Substance: EXENATIDE
     Route: 065

REACTIONS (5)
  - Device breakage [Unknown]
  - Drug ineffective [Unknown]
  - Injection site haemorrhage [Unknown]
  - Device malfunction [Unknown]
  - Injection site pain [Unknown]

NARRATIVE: CASE EVENT DATE: 20180426
